FAERS Safety Report 21407553 (Version 1)
Quarter: 2022Q4

REPORT INFORMATION
  Report Type: Report from Study
  Country: US (occurrence: US)
  Receive Date: 20221004
  Receipt Date: 20221004
  Transmission Date: 20230112
  Serious: Yes (Other)
  Sender: FDA-Public Use
  Company Number: US-MYLANLABS-2022M1110688

PATIENT
  Sex: Female

DRUGS (16)
  1. IDARUBICIN [Suspect]
     Active Substance: IDARUBICIN
     Indication: B precursor type acute leukaemia
     Dosage: UNK UNK, CYCLE ALLR3 REGIMEN
     Route: 065
  2. MITOXANTRONE [Suspect]
     Active Substance: MITOXANTRONE HYDROCHLORIDE
     Indication: B precursor type acute leukaemia
     Dosage: UNK, CYCLE ALLR3 REGIMEN
     Route: 065
  3. DEXAMETHASONE [Suspect]
     Active Substance: DEXAMETHASONE
     Indication: B precursor type acute leukaemia
     Dosage: UNK, CYCLE ALLR3 REGIMEN
     Route: 065
  4. DEXAMETHASONE [Suspect]
     Active Substance: DEXAMETHASONE
     Dosage: UNK, CYCLE CVD REGIMEN; IN A COMBINATION WITH VENETOCLAX
     Route: 065
  5. METHOTREXATE [Suspect]
     Active Substance: METHOTREXATE
     Indication: B precursor type acute leukaemia
     Dosage: UNK UNK, CYCLE
     Route: 065
  6. VINCRISTINE [Suspect]
     Active Substance: VINCRISTINE
     Indication: B precursor type acute leukaemia
     Dosage: UNK UNK, CYCLE ALLR3 REGIMEN
     Route: 065
  7. VINCRISTINE [Suspect]
     Active Substance: VINCRISTINE
     Dosage: UNK UNK, CYCLE
     Route: 065
  8. VINCRISTINE [Suspect]
     Active Substance: VINCRISTINE
     Dosage: UNK UNK, CYCLE CVD REGIMEN; IN A COMBINATION WITH VENETOCLAX
     Route: 065
  9. BORTEZOMIB [Suspect]
     Active Substance: BORTEZOMIB
     Indication: B precursor type acute leukaemia
     Dosage: UNK UNK, CYCLE ALLR3 REGIMEN
     Route: 065
  10. KYMRIAH [Suspect]
     Active Substance: TISAGENLECLEUCEL
     Indication: B precursor type acute leukaemia
     Dosage: UNK UNK, CYCLE
     Route: 065
  11. BLINATUMOMAB [Suspect]
     Active Substance: BLINATUMOMAB
     Indication: B precursor type acute leukaemia
     Dosage: UNK UNK, CYCLE
     Route: 065
  12. NIVOLUMAB [Suspect]
     Active Substance: NIVOLUMAB
     Indication: B precursor type acute leukaemia
     Dosage: UNK, CYCLE
     Route: 065
  13. DAUNORUBICIN [Suspect]
     Active Substance: DAUNORUBICIN
     Indication: B precursor type acute leukaemia
     Dosage: UNK, CYCLE
     Route: 065
  14. VENETOCLAX [Suspect]
     Active Substance: VENETOCLAX
     Indication: B precursor type acute leukaemia
     Dosage: 70 MILLIGRAM, QD
     Route: 065
  15. CYCLOPHOSPHAMIDE [Suspect]
     Active Substance: CYCLOPHOSPHAMIDE
     Indication: B precursor type acute leukaemia
     Dosage: CVD REGIMEN; IN A COMBINATION WITH VENETOCLAX
     Route: 065
  16. VORICONAZOLE [Concomitant]
     Active Substance: VORICONAZOLE
     Indication: Product used for unknown indication
     Dosage: UNK
     Route: 065

REACTIONS (1)
  - Drug ineffective [Unknown]
